FAERS Safety Report 7351249-X (Version None)
Quarter: 2011Q1

REPORT INFORMATION
  Report Type: 
  Country: None (occurrence: None)
  Receive Date: 20110314
  Receipt Date: 20110310
  Transmission Date: 20110831
  Serious: Yes (Other)
  Sender: FDA-Public Use
  Company Number: AU-PFIZER INC-2011054885

PATIENT
  Age: 57 Year
  Sex: Female

DRUGS (7)
  1. NITRAZEPAM [Suspect]
  2. DIAZEPAM [Suspect]
  3. CHAMPIX [Suspect]
  4. NEXIUM [Suspect]
  5. OXYCONTIN [Suspect]
  6. PREMARIN [Suspect]
  7. MERSYNDOL [Suspect]
     Indication: PAIN

REACTIONS (2)
  - MULTIPLE DRUG OVERDOSE [None]
  - SUICIDE ATTEMPT [None]
